FAERS Safety Report 4467003-2 (Version None)
Quarter: 2004Q4

REPORT INFORMATION
  Report Type: 
  Country: None (occurrence: None)
  Receive Date: 20041006
  Receipt Date: 20040924
  Transmission Date: 20050328
  Serious: Yes (Other)
  Sender: FDA-Public Use
  Company Number: US-JNJFOC-20040502985

PATIENT
  Sex: Female

DRUGS (17)
  1. DURAGESIC [Suspect]
     Route: 062
  2. AMARYL [Concomitant]
  3. GLUCOPHAGE [Concomitant]
  4. VASOTEC [Concomitant]
  5. FOSAMAX [Concomitant]
  6. CA-MVI [Concomitant]
  7. MAXZIDE [Concomitant]
  8. MAXZIDE [Concomitant]
  9. ASPIRIN [Concomitant]
  10. BEXTRA [Concomitant]
  11. ZOCOR [Concomitant]
  12. FLEXERIL [Concomitant]
  13. ESTRADIOL [Concomitant]
  14. TYLENOL W/ CODEINE NO. 3 [Concomitant]
  15. TYLENOL W/ CODEINE NO. 3 [Concomitant]
  16. XALATAN [Concomitant]
  17. ENALAPRIL [Concomitant]

REACTIONS (16)
  - APPLICATION SITE BURNING [None]
  - APPLICATION SITE REACTION [None]
  - CONFUSIONAL STATE [None]
  - ECZEMA [None]
  - ESCHERICHIA URINARY TRACT INFECTION [None]
  - FALL [None]
  - FATIGUE [None]
  - FEELING COLD [None]
  - HAEMATURIA [None]
  - HEAT RASH [None]
  - HYPERHIDROSIS [None]
  - HYPOGLYCAEMIA [None]
  - MENTAL STATUS CHANGES [None]
  - RASH GENERALISED [None]
  - RENAL FAILURE CHRONIC [None]
  - WEIGHT DECREASED [None]
